FAERS Safety Report 6815371-6 (Version None)
Quarter: 2010Q3

REPORT INFORMATION
  Report Type: 
  Country: None (occurrence: None)
  Receive Date: 20100701
  Receipt Date: 20100701
  Transmission Date: 20110219
  Serious: Yes (Hospitalization)
  Sender: FDA-Public Use
  Company Number: None

PATIENT
  Sex: Male
  Weight: 164 kg

DRUGS (2)
  1. ZOSYN [Suspect]
     Indication: PNEUMONIA
     Dosage: 3.375GM Q 6HRS IVPB
     Dates: start: 20100625
  2. ZOSYN [Suspect]
     Indication: PNEUMONIA
     Dosage: 3.375GM Q 6HRS IVPB
     Dates: start: 20100626

REACTIONS (1)
  - RASH [None]
